FAERS Safety Report 11180722 (Version 1)
Quarter: 2015Q2

REPORT INFORMATION
  Report Type: Spontaneous
  Country: JP (occurrence: JP)
  Receive Date: 20150611
  Receipt Date: 20150611
  Transmission Date: 20150821
  Serious: Yes (Hospitalization, Other)
  Sender: FDA-Public Use
  Company Number: JP-JPN-JP2015JPN078247

PATIENT
  Age: 45 Year
  Sex: Male
  Weight: 85 kg

DRUGS (8)
  1. ALKERAN [Suspect]
     Active Substance: MELPHALAN
     Indication: PLASMA CELL MYELOMA
     Dosage: UNK
     Route: 048
     Dates: start: 200406, end: 200706
  2. PREGABALIN. [Concomitant]
     Active Substance: PREGABALIN
     Dosage: UNK
  3. PREDNISOLONE. [Suspect]
     Active Substance: PREDNISOLONE
     Indication: PLASMA CELL MYELOMA
     Dosage: UNK
     Dates: start: 200406, end: 200706
  4. SERTRALINE HYDROCHLORIDE. [Concomitant]
     Active Substance: SERTRALINE HYDROCHLORIDE
     Dosage: UNK
  5. BROMAZEPAM [Concomitant]
     Active Substance: BROMAZEPAM
     Dosage: UNK
  6. ALKERAN [Suspect]
     Active Substance: MELPHALAN
     Dosage: UNK
     Route: 042
     Dates: start: 201103
  7. NITRAZEPAM [Concomitant]
     Active Substance: NITRAZEPAM
     Dosage: UNK
  8. PREDNISOLONE. [Suspect]
     Active Substance: PREDNISOLONE
     Dosage: UNK
     Dates: start: 201103

REACTIONS (9)
  - Cardiac failure acute [Recovered/Resolved]
  - Mitral valve incompetence [Unknown]
  - Pulmonary congestion [Unknown]
  - Dyspnoea exertional [Unknown]
  - Cardiomegaly [Unknown]
  - Weight decreased [Unknown]
  - Cardiac amyloidosis [Unknown]
  - Neuropathy peripheral [Unknown]
  - Hepatic function abnormal [Unknown]

NARRATIVE: CASE EVENT DATE: 201103
